FAERS Safety Report 10712719 (Version 2)
Quarter: 2015Q2

REPORT INFORMATION
  Report Type: Report from Study
  Country: GB (occurrence: GB)
  Receive Date: 20150115
  Receipt Date: 20150508
  Transmission Date: 20150821
  Serious: Yes (Death)
  Sender: FDA-Public Use
  Company Number: GB-ROCHE-766588

PATIENT
  Age: 54 Year
  Sex: Female
  Weight: 69.6 kg

DRUGS (6)
  1. COTRIMOXAZOLE [Concomitant]
     Active Substance: SULFAMETHOXAZOLE\TRIMETHOPRIM
     Route: 048
  2. RITUXIMAB [Suspect]
     Active Substance: RITUXIMAB
     Indication: ACUTE LYMPHOCYTIC LEUKAEMIA
     Dosage: FREQUENCY: DAYS: 3, 10 17 AND 24, DOSE IS FULL
     Route: 042
     Dates: start: 20110204, end: 20110225
  3. VANCOMYCIN [Concomitant]
     Active Substance: VANCOMYCIN
     Route: 042
  4. PEGASPARGASE [Suspect]
     Active Substance: PEGASPARGASE
     Indication: ACUTE LYMPHOCYTIC LEUKAEMIA
     Dosage: DOSE: 1650 U, FREQUENCY: DAYS: 4, 18
     Route: 042
     Dates: start: 20110205, end: 20110219
  5. AMBISOME [Concomitant]
     Active Substance: AMPHOTERICIN B
     Route: 042
  6. ALLOPURINOL. [Concomitant]
     Active Substance: ALLOPURINOL
     Route: 048

REACTIONS (1)
  - Blood bilirubin increased [Fatal]

NARRATIVE: CASE EVENT DATE: 20110204
